FAERS Safety Report 7605410-7 (Version None)
Quarter: 2011Q3

REPORT INFORMATION
  Report Type: 
  Country: None (occurrence: None)
  Receive Date: 20110705
  Receipt Date: 20110627
  Transmission Date: 20111222
  Serious: Yes (Hospitalization, Other)
  Sender: FDA-Public Use
  Company Number: CL-319-2011

PATIENT
  Age: 73 Year
  Sex: Female

DRUGS (1)
  1. DIPYRIDAMOLE [Suspect]
     Indication: SCAN MYOCARDIAL PERFUSION
     Dosage: 0.57MG/KG ONCE IV/ONCE
     Route: 042

REACTIONS (4)
  - CIRCULATORY COLLAPSE [None]
  - SHOCK [None]
  - WHEEZING [None]
  - PULMONARY OEDEMA [None]
